FAERS Safety Report 7180499-0 (Version None)
Quarter: 2010Q4

REPORT INFORMATION
  Report Type: 
  Country: None (occurrence: None)
  Receive Date: 20101221
  Receipt Date: 20101214
  Transmission Date: 20110411
  Serious: Yes (Other)
  Sender: FDA-Public Use
  Company Number: JP-PFIZER INC-2010168458

PATIENT
  Age: 77 Year
  Sex: Male

DRUGS (2)
  1. ZYVOX [Suspect]
     Indication: EXTRADURAL ABSCESS
     Dosage: UNK
     Route: 048
     Dates: start: 20101202, end: 20101206
  2. ZYVOX [Suspect]
     Indication: STAPHYLOCOCCAL INFECTION

REACTIONS (1)
  - ILEUS PARALYTIC [None]
